FAERS Safety Report 21434588 (Version 1)
Quarter: 2022Q4

REPORT INFORMATION
  Report Type: Spontaneous
  Country: JP (occurrence: None)
  Receive Date: 20221010
  Receipt Date: 20221010
  Transmission Date: 20230113
  Serious: Yes (Other)
  Sender: FDA-Public Use
  Company Number: 2022A341958

PATIENT
  Sex: Male

DRUGS (10)
  1. SEROQUEL [Suspect]
     Active Substance: QUETIAPINE FUMARATE
     Indication: Schizophrenia
     Route: 048
  2. SEROQUEL [Suspect]
     Active Substance: QUETIAPINE FUMARATE
     Indication: Schizophrenia
     Route: 048
  3. SEROQUEL [Suspect]
     Active Substance: QUETIAPINE FUMARATE
     Dosage: 2 DF, THRICE DAILY, MORNING, NOON AND EVENING
     Route: 048
  4. EDOXABAN TOSYLATE [Concomitant]
     Active Substance: EDOXABAN TOSYLATE
     Indication: Product used for unknown indication
     Route: 048
  5. AZOSEMIDE [Concomitant]
     Active Substance: AZOSEMIDE
     Indication: Product used for unknown indication
     Dosage: 60 MG, TWICE DAILY, 2 TABLETS IN THE MORNING AND 2 TABLETS IN THE NOON
     Route: 048
  6. CLOTIAZEPAM [Concomitant]
     Active Substance: CLOTIAZEPAM
     Indication: Product used for unknown indication
     Dosage: 5 MG, TWICE DAILY, 1 TABLET IN THE MORNING AND 1 TABLET IN THE EVENING
     Route: 048
  7. ZYPREXA [Concomitant]
     Active Substance: OLANZAPINE
     Indication: Product used for unknown indication
     Route: 048
  8. FLUNITRAZEPAM [Concomitant]
     Active Substance: FLUNITRAZEPAM
     Indication: Insomnia
     Route: 048
  9. BROTIZOLAM [Concomitant]
     Active Substance: BROTIZOLAM
     Indication: Insomnia
     Dosage: 0.25 MG, UNKNOWN FREQ.
     Route: 048
  10. BENZALIN [Concomitant]
     Indication: Insomnia
     Dosage: UNK UNK, UNKNOWN FREQ.
     Route: 048

REACTIONS (6)
  - Drug dependence [Unknown]
  - Haemorrhage [Unknown]
  - Physical deconditioning [Unknown]
  - Ill-defined disorder [Unknown]
  - Renal disorder [Recovered/Resolved]
  - Insomnia [Recovered/Resolved]
